FAERS Safety Report 5157678-7 (Version None)
Quarter: 2006Q4

REPORT INFORMATION
  Report Type: 
  Country: None (occurrence: None)
  Receive Date: 20061127
  Receipt Date: 20061123
  Transmission Date: 20070319
  Serious: Yes (Life-Threatening, Hospitalization)
  Sender: FDA-Public Use
  Company Number: 2006PK02427

PATIENT
  Sex: Female
  Weight: 75 kg

DRUGS (1)
  1. ASCOTOP [Suspect]
     Indication: MIGRAINE
     Route: 048
     Dates: start: 20061122, end: 20061122

REACTIONS (2)
  - ATRIAL FIBRILLATION [None]
  - TACHYCARDIA [None]
